FAERS Safety Report 20653579 (Version 1)
Quarter: 2022Q1

REPORT INFORMATION
  Report Type: Spontaneous
  Country: US (occurrence: US)
  Receive Date: 20220330
  Receipt Date: 20220330
  Transmission Date: 20220423
  Serious: No
  Sender: FDA-Public Use
  Company Number: US-PFIZER INC-202200447374

PATIENT
  Age: 63 Year
  Sex: Female

DRUGS (1)
  1. IBRANCE [Suspect]
     Active Substance: PALBOCICLIB
     Dosage: 125 MG, CYCLIC (125MG BY MOUTH DAILY FOR 21 DAYS ON, THEN STOP TAKING FOR 7 DAYS. REPEAT CYCLE)
     Route: 048
     Dates: start: 20220209

REACTIONS (2)
  - White blood cell count decreased [Unknown]
  - Fatigue [Unknown]
